FAERS Safety Report 10117507 (Version 2)
Quarter: 2015Q3

REPORT INFORMATION
  Report Type: Spontaneous
  Country: US (occurrence: US)
  Receive Date: 20140425
  Receipt Date: 20150722
  Transmission Date: 20151125
  Serious: No
  Sender: FDA-Public Use
  Company Number: US-GILEAD-2013-0073791

PATIENT
  Age: 41 Year
  Sex: Female

DRUGS (24)
  1. CODEINE [Concomitant]
     Active Substance: CODEINE
  2. ESTROGEN NOS [Concomitant]
     Active Substance: ESTROGENS
  3. ONDANSETRON [Concomitant]
     Active Substance: ONDANSETRON
  4. METOPROLOL [Concomitant]
     Active Substance: METOPROLOL
  5. LORAZEPAM. [Concomitant]
     Active Substance: LORAZEPAM
  6. PHENERGAN [Concomitant]
     Active Substance: PROMETHAZINE HYDROCHLORIDE
  7. IBUPROFEN. [Concomitant]
     Active Substance: IBUPROFEN
  8. CETRIZINE [Concomitant]
     Active Substance: CETIRIZINE HYDROCHLORIDE
  9. CLOTRIMAZOLE. [Concomitant]
     Active Substance: CLOTRIMAZOLE
  10. BECLOMETHASONE                     /00212602/ [Concomitant]
  11. ALBUTEROL                          /00139501/ [Concomitant]
     Active Substance: ALBUTEROL
  12. RAMIPRIL. [Concomitant]
     Active Substance: RAMIPRIL
  13. ATRIPLA [Suspect]
     Active Substance: EFAVIRENZ\EMTRICITABINE\TENOFOVIR DISOPROXIL FUMARATE
     Indication: HIV INFECTION
     Dosage: UNK
     Dates: start: 20130227
  14. AZITHROMYCIN [Concomitant]
     Active Substance: AZITHROMYCIN ANHYDROUS
  15. NAPROXEN. [Concomitant]
     Active Substance: NAPROXEN
  16. LISINOPRIL. [Concomitant]
     Active Substance: LISINOPRIL
  17. LORATADINE. [Concomitant]
     Active Substance: LORATADINE
  18. PAROXETINE [Concomitant]
     Active Substance: PAROXETINE\PAROXETINE HYDROCHLORIDE
  19. OMEPRAZOLE. [Concomitant]
     Active Substance: OMEPRAZOLE
  20. BACLOFEN. [Concomitant]
     Active Substance: BACLOFEN
  21. ATORVASTATIN [Concomitant]
     Active Substance: ATORVASTATIN
     Dosage: 10 MG, UNK
  22. ALLOPURINOL. [Concomitant]
     Active Substance: ALLOPURINOL
  23. ASPIRIN. [Concomitant]
     Active Substance: ASPIRIN
  24. METFORMIN [Concomitant]
     Active Substance: METFORMIN HYDROCHLORIDE

REACTIONS (1)
  - Rash [Unknown]

NARRATIVE: CASE EVENT DATE: 20130304
